FAERS Safety Report 14074412 (Version 3)
Quarter: 2017Q4

REPORT INFORMATION
  Report Type: Spontaneous
  Country: FR (occurrence: FR)
  Receive Date: 20171010
  Receipt Date: 20171121
  Transmission Date: 20180321
  Serious: Yes (Hospitalization, Other)
  Sender: FDA-Public Use
  Company Number: FR-SA-2017SA186255

PATIENT
  Age: 50 Year
  Sex: Male
  Weight: 90 kg

DRUGS (2)
  1. CERDELGA [Suspect]
     Active Substance: ELIGLUSTAT
     Indication: GAUCHER^S DISEASE
     Route: 048
     Dates: start: 201603, end: 20170412
  2. EXFORGE [Concomitant]
     Active Substance: AMLODIPINE BESYLATE\VALSARTAN
     Indication: HYPERTENSION
     Route: 048

REACTIONS (6)
  - Weight decreased [Unknown]
  - Diabetes insipidus [Unknown]
  - Thrombocytopenia [Unknown]
  - Type 2 diabetes mellitus [Recovering/Resolving]
  - Sleep apnoea syndrome [Unknown]
  - Asthenia [Unknown]

NARRATIVE: CASE EVENT DATE: 201702
